FAERS Safety Report 5001887-4 (Version None)
Quarter: 2006Q2

REPORT INFORMATION
  Report Type: 
  Country: None (occurrence: None)
  Receive Date: 20060512
  Receipt Date: 20060512
  Transmission Date: 20061013
  Serious: Yes (Hospitalization)
  Sender: FDA-Public Use
  Company Number: None

PATIENT
  Sex: Male
  Weight: 48.9885 kg

DRUGS (2)
  1. VIDAZA [Suspect]
     Indication: MYELODYSPLASTIC SYNDROME
     Dosage: 113.48 MG - 75 MG/M2 - DAILY SQ
     Route: 058
     Dates: start: 20060408, end: 20060413
  2. VIDAZA [Suspect]
     Dates: start: 20060505, end: 20060510

REACTIONS (1)
  - PYODERMA GANGRENOSUM [None]
